FAERS Safety Report 8134654 (Version 4)
Quarter: 2015Q3

REPORT INFORMATION
  Report Type: Report from Study
  Country: US (occurrence: US)
  Receive Date: 20110914
  Receipt Date: 20150729
  Transmission Date: 20151125
  Serious: Yes (Hospitalization)
  Sender: FDA-Public Use
  Company Number: US-BIOGENIDEC-2011BI033898

PATIENT
  Age: 56 Year
  Sex: Female

DRUGS (2)
  1. AVONEX [Suspect]
     Active Substance: INTERFERON BETA-1A
     Indication: MULTIPLE SCLEROSIS
     Route: 030
     Dates: start: 19960720, end: 20051214
  2. AVONEX [Suspect]
     Active Substance: INTERFERON BETA-1A
     Indication: MULTIPLE SCLEROSIS
     Route: 030
     Dates: start: 20060706, end: 20150301

REACTIONS (9)
  - Knee arthroplasty [Recovered/Resolved]
  - Asthenia [Recovered/Resolved]
  - Emotional distress [Not Recovered/Not Resolved]
  - Multiple sclerosis relapse [Recovered/Resolved]
  - Osteonecrosis [Recovered/Resolved]
  - Influenza like illness [Recovered/Resolved]
  - Hip arthroplasty [Recovered/Resolved]
  - Thrombosis [Unknown]
  - Eye pain [Unknown]

NARRATIVE: CASE EVENT DATE: 201106
